FAERS Safety Report 9319783 (Version 2)
Quarter: 2014Q1

REPORT INFORMATION
  Report Type: Spontaneous
  Country: FR (occurrence: FR)
  Receive Date: 20130530
  Receipt Date: 20140205
  Transmission Date: 20141002
  Serious: Yes (Hospitalization)
  Sender: FDA-Public Use
  Company Number: FR-GLAXOSMITHKLINE-B0895156A

PATIENT
  Age: 17 Year
  Sex: Male

DRUGS (7)
  1. LAMICTAL [Suspect]
     Indication: PRODUCT USED FOR UNKNOWN INDICATION
     Dosage: 200MG SINGLE DOSE
     Route: 048
     Dates: start: 20130525, end: 20130525
  2. DEPAKINE [Concomitant]
     Indication: PRODUCT USED FOR UNKNOWN INDICATION
     Route: 065
     Dates: start: 20130525, end: 20130525
  3. RISPERDAL [Concomitant]
     Indication: PRODUCT USED FOR UNKNOWN INDICATION
     Route: 065
     Dates: start: 20130525, end: 20130525
  4. URBANYL [Concomitant]
     Indication: PRODUCT USED FOR UNKNOWN INDICATION
     Route: 065
     Dates: start: 20130525, end: 20130525
  5. TEGRETOL [Concomitant]
     Indication: EPILEPSY
     Route: 065
  6. SABRIL [Concomitant]
     Indication: EPILEPSY
     Route: 065
  7. VIMPAT [Concomitant]
     Indication: EPILEPSY
     Route: 065

REACTIONS (7)
  - Hypersensitivity [Not Recovered/Not Resolved]
  - Rhinitis [Recovered/Resolved]
  - Ocular hyperaemia [Recovered/Resolved]
  - Pyrexia [Not Recovered/Not Resolved]
  - Nausea [Not Recovered/Not Resolved]
  - Fatigue [Not Recovered/Not Resolved]
  - Wrong patient received medication [Unknown]
